FAERS Safety Report 6133767-5 (Version None)
Quarter: 2009Q1

REPORT INFORMATION
  Report Type: 
  Country: None (occurrence: None)
  Receive Date: 20090326
  Receipt Date: 20090316
  Transmission Date: 20090719
  Serious: Yes (Hospitalization, Other)
  Sender: FDA-Public Use
  Company Number: AR-PFIZER INC-2008034519

PATIENT

DRUGS (1)
  1. XALATAN [Suspect]
     Indication: GLAUCOMA
     Route: 047
     Dates: start: 20060101

REACTIONS (8)
  - ANAEMIA [None]
  - ANXIETY [None]
  - CONJUNCTIVITIS VIRAL [None]
  - HYPERSENSITIVITY [None]
  - INTRAOCULAR PRESSURE INCREASED [None]
  - NERVOUSNESS [None]
  - SWELLING FACE [None]
  - TACHYCARDIA [None]
